FAERS Safety Report 20956236 (Version 1)
Quarter: 2022Q2

REPORT INFORMATION
  Report Type: Spontaneous
  Country: US (occurrence: None)
  Receive Date: 20220614
  Receipt Date: 20220614
  Transmission Date: 20220721
  Serious: Yes (Hospitalization)
  Sender: FDA-Public Use
  Company Number: None

PATIENT
  Age: 73 Year
  Sex: Male

DRUGS (2)
  1. PROPOFOL [Suspect]
     Active Substance: PROPOFOL
     Indication: Anaesthesia
     Dosage: FREQUENCY : ONCE;?
     Route: 042
     Dates: start: 20220513, end: 20220513
  2. MIDAZOLAM HYDROCHLORIDE [Suspect]
     Active Substance: MIDAZOLAM HYDROCHLORIDE
     Indication: Anaesthesia
     Dosage: FREQUENCY : ONCE;?
     Route: 042
     Dates: start: 20220513, end: 20220513

REACTIONS (3)
  - Hypotension [None]
  - Somnolence [None]
  - Sedation [None]

NARRATIVE: CASE EVENT DATE: 20220513
